FAERS Safety Report 4423553-6 (Version None)
Quarter: 2004Q3

REPORT INFORMATION
  Report Type: 
  Country: None (occurrence: None)
  Receive Date: 20040714
  Receipt Date: 20040423
  Transmission Date: 20050211
  Serious: Yes (Hospitalization)
  Sender: FDA-Public Use
  Company Number: 200413126US

PATIENT
  Age: 42 Year
  Sex: Female

DRUGS (8)
  1. TAXOTERE [Suspect]
     Indication: ENDOMETRIAL CANCER METASTATIC
     Dosage: 100 MG/M**2 QW
     Dates: start: 20040324, end: 20040324
  2. GEMCITABINE HYDROCHLORIDE (GEMZAR) [Concomitant]
  3. MOTRIN [Concomitant]
  4. HYDROCHLOROTHIAZIDE [Concomitant]
  5. LORATADINE (CLARITIN) [Concomitant]
  6. POTASSIUM [Concomitant]
  7. PARACETAMOL, HYDROCODONE BITARTRATE (LORTAB) [Concomitant]
  8. RADIATIONS THERAPY NOS [Concomitant]

REACTIONS (4)
  - FEBRILE NEUTROPENIA [None]
  - NEUTROPHIL COUNT DECREASED [None]
  - STAPHYLOCOCCAL SEPSIS [None]
  - WHITE BLOOD CELL COUNT DECREASED [None]
